FAERS Safety Report 9931787 (Version 6)
Quarter: 2014Q2

REPORT INFORMATION
  Report Type: Report from Study
  Country: CA (occurrence: CA)
  Receive Date: 20140228
  Receipt Date: 20140630
  Transmission Date: 20141212
  Serious: Yes (Hospitalization, Other)
  Sender: FDA-Public Use
  Company Number: CA-ROCHE-1319387

PATIENT
  Age: 68 Year
  Sex: Female
  Weight: 44 kg

DRUGS (8)
  1. ACTEMRA [Suspect]
     Indication: RHEUMATOID ARTHRITIS
     Route: 042
     Dates: start: 20131109
  2. ARTHROTEC [Concomitant]
  3. APO-HYDROXYQUINE [Concomitant]
  4. OMEPRAZOLE [Concomitant]
     Dosage: RATIO-OMEPRAZOLE
     Route: 065
  5. TAPAZOLE [Concomitant]
  6. APO-PREDNISONE [Concomitant]
  7. DOMPERIDONE [Concomitant]
     Dosage: APO-DOMPERIDONE
     Route: 065
  8. CITALOPRAM [Concomitant]
     Dosage: JAMP-CITALOPRAM
     Route: 065

REACTIONS (8)
  - Urinary tract infection [Not Recovered/Not Resolved]
  - Autonomic neuropathy [Unknown]
  - Abdominal pain upper [Unknown]
  - Hypotension [Unknown]
  - Blood sodium decreased [Unknown]
  - Nausea [Unknown]
  - Hypertension [Unknown]
  - Poor venous access [Unknown]
